FAERS Safety Report 6999461-3 (Version None)
Quarter: 2010Q3

REPORT INFORMATION
  Report Type: 
  Country: None (occurrence: None)
  Receive Date: 20100920
  Receipt Date: 20070607
  Transmission Date: 20110219
  Serious: Yes (Other)
  Sender: FDA-Public Use
  Company Number: US-ASTRAZENECA-2006UW24186

PATIENT
  Sex: Male
  Weight: 106.6 kg

DRUGS (8)
  1. SEROQUEL [Suspect]
     Indication: DEPRESSION
     Dosage: 200 MG - 300 MG
     Route: 048
     Dates: start: 20030623
  2. WELLBUTRIN SR [Concomitant]
     Route: 048
     Dates: start: 20030623
  3. ACCUPRIL [Concomitant]
     Route: 048
     Dates: start: 20030623
  4. LIPITOR [Concomitant]
     Route: 048
     Dates: start: 20010117
  5. RISPERDAL [Concomitant]
     Dosage: 2 MG - 3 MG
     Route: 048
     Dates: start: 20010117
  6. CELEXA [Concomitant]
     Route: 048
     Dates: start: 20010117
  7. TRAZODONE HCL [Concomitant]
     Dates: start: 20030923
  8. ZYPREXA [Concomitant]
     Route: 048
     Dates: start: 20010117

REACTIONS (4)
  - DIABETES MELLITUS [None]
  - DIABETIC COMA [None]
  - DIABETIC KETOACIDOSIS [None]
  - TYPE 2 DIABETES MELLITUS [None]
